FAERS Safety Report 5275226-8 (Version None)
Quarter: 2007Q1

REPORT INFORMATION
  Report Type: 
  Country: None (occurrence: None)
  Receive Date: 20070326
  Receipt Date: 20070320
  Transmission Date: 20070707
  Serious: Yes (Disabling)
  Sender: FDA-Public Use
  Company Number: HQWYE439423OCT03

PATIENT
  Age: 16 Year
  Sex: Female

DRUGS (1)
  1. CEFSPAN [Suspect]
     Dosage: UNKNOWN
     Route: 048
     Dates: start: 19920301, end: 19920301

REACTIONS (3)
  - BLINDNESS [None]
  - TOXIC EPIDERMAL NECROLYSIS [None]
  - ULCERATIVE KERATITIS [None]
